FAERS Safety Report 9436796 (Version 3)
Quarter: 2013Q4

REPORT INFORMATION
  Report Type: Report from Study
  Country: CA (occurrence: CA)
  Receive Date: 20130802
  Receipt Date: 20131213
  Transmission Date: 20140711
  Serious: Yes (Hospitalization, Other)
  Sender: FDA-Public Use
  Company Number: CA-JNJFOC-20130717696

PATIENT
  Age: 20 Year
  Sex: Male
  Weight: 143.5 kg

DRUGS (3)
  1. REMICADE [Suspect]
     Indication: ANKYLOSING SPONDYLITIS
     Route: 042
     Dates: start: 201104
  2. METHOTREXATE [Concomitant]
     Route: 048
  3. NAPROXEN [Concomitant]
     Route: 065

REACTIONS (2)
  - Injury [Recovering/Resolving]
  - Localised infection [Recovering/Resolving]
